FAERS Safety Report 22281789 (Version 5)
Quarter: 2023Q4

REPORT INFORMATION
  Report Type: Spontaneous
  Country: CA (occurrence: CA)
  Receive Date: 20230504
  Receipt Date: 20231214
  Transmission Date: 20240109
  Serious: Yes (Other)
  Sender: FDA-Public Use
  Company Number: CA-CELLTRION INC.-2023CA002111

PATIENT

DRUGS (16)
  1. INFLECTRA [Suspect]
     Active Substance: INFLIXIMAB-DYYB
     Indication: Colitis ulcerative
     Dosage: 5 MG/KG (745 MG) ON WEEK 0, W0, W2, W6 AND EVERY 8 WEEKS
     Route: 042
     Dates: start: 20230118
  2. INFLECTRA [Suspect]
     Active Substance: INFLIXIMAB-DYYB
     Dosage: 5 MG/KG (755 MG), INDUCTION WEEK 2, W0, W2, W6 AND EVERY 8 WEEKS
     Route: 042
     Dates: start: 20230202
  3. INFLECTRA [Suspect]
     Active Substance: INFLIXIMAB-DYYB
     Dosage: 5 MG/KG, W0 W2 W6, EVERY 8 WEEKS
     Route: 042
     Dates: start: 20230302
  4. INFLECTRA [Suspect]
     Active Substance: INFLIXIMAB-DYYB
     Dosage: 5 MG/KG (770 MG), EVERY 8 WEEKS
     Route: 042
     Dates: start: 20230425
  5. INFLECTRA [Suspect]
     Active Substance: INFLIXIMAB-DYYB
     Dosage: 5 MG/KG (770 MG), EVERY 8 WEEKS
     Route: 042
     Dates: start: 20230620
  6. INFLECTRA [Suspect]
     Active Substance: INFLIXIMAB-DYYB
     Dosage: 5 MG/KG (760 MG), EVERY 8 WEEKS (AFTER 8 WEEKS AND 1 DAY)
     Route: 042
     Dates: start: 20230816
  7. INFLECTRA [Suspect]
     Active Substance: INFLIXIMAB-DYYB
     Dosage: 5 MG/KG (750 MG), EVERY 8 WEEKS
     Route: 042
     Dates: start: 20231011
  8. INFLECTRA [Suspect]
     Active Substance: INFLIXIMAB-DYYB
     Dosage: 5 MG/KG (760 MG, 8 WEEKS), W0, W2, W6 AND EVERY 8 WEEKS
     Route: 042
     Dates: start: 20231205
  9. ALENDRONATE [Concomitant]
     Active Substance: ALENDRONATE SODIUM
     Dosage: 70 MG, FREQUENCY UNKNOWN
  10. AMLODIPINE [Concomitant]
     Active Substance: AMLODIPINE BESYLATE
     Dosage: 1 DF, UNKNOWN
  11. BUDESONIDE [Concomitant]
     Active Substance: BUDESONIDE
     Dosage: UNK
  12. PERINDOPRIL ARGININE [Concomitant]
     Active Substance: PERINDOPRIL ARGININE
     Dosage: 1 DF, UNKNOWN
  13. MESALAMINE [Concomitant]
     Active Substance: MESALAMINE
     Dosage: 4800 MG, FREQUENCY UNKNOWN
  14. PANTOPRAZOLE SODIUM [Concomitant]
     Active Substance: PANTOPRAZOLE SODIUM
     Dosage: 40 MG, FREQUENCY UNKNOWN
  15. PREDNISONE [Concomitant]
     Active Substance: PREDNISONE
     Dosage: 40 MG, UNKNOWN FREQUENCY
     Dates: start: 202212
  16. MESALAMINE [Concomitant]
     Active Substance: MESALAMINE
     Dosage: 1 G, FREQUENCY UNKNOWN

REACTIONS (5)
  - Muscular weakness [Not Recovered/Not Resolved]
  - Arthralgia [Not Recovered/Not Resolved]
  - Hypertension [Not Recovered/Not Resolved]
  - Arthritis [Not Recovered/Not Resolved]
  - Condition aggravated [Recovered/Resolved]

NARRATIVE: CASE EVENT DATE: 20230101
